FAERS Safety Report 7071332-6 (Version None)
Quarter: 2010Q4

REPORT INFORMATION
  Report Type: 
  Country: None (occurrence: None)
  Receive Date: 20101029
  Receipt Date: 20101020
  Transmission Date: 20110411
  Serious: Yes (Hospitalization)
  Sender: FDA-Public Use
  Company Number: US-JNJFOC-20101005923

PATIENT
  Sex: Male
  Weight: 70.31 kg

DRUGS (4)
  1. LEVAQUIN [Suspect]
     Indication: SINUSITIS
     Route: 048
  2. LEVAQUIN [Suspect]
     Route: 048
  3. LIALDA [Concomitant]
     Indication: COLITIS ULCERATIVE
     Route: 048
  4. CANASA [Concomitant]
     Indication: COLITIS ULCERATIVE
     Route: 054

REACTIONS (7)
  - ARTHRALGIA [None]
  - DIARRHOEA [None]
  - JOINT SWELLING [None]
  - LOCAL SWELLING [None]
  - PAIN IN EXTREMITY [None]
  - RECTAL HAEMORRHAGE [None]
  - WEIGHT DECREASED [None]
